FAERS Safety Report 8999527 (Version 2)
Quarter: 2013Q1

REPORT INFORMATION
  Report Type: Report from Study
  Country: US (occurrence: US)
  Receive Date: 20130103
  Receipt Date: 20130114
  Transmission Date: 20140127
  Serious: Yes (Death)
  Sender: FDA-Public Use
  Company Number: US-ROCHE-1175524

PATIENT
  Age: 46 Year
  Sex: Male

DRUGS (4)
  1. ACTILYSE [Suspect]
     Indication: PORTAL VEIN THROMBOSIS
     Route: 065
  2. ACTILYSE [Suspect]
     Indication: VENOOCCLUSIVE LIVER DISEASE
  3. HEPARIN [Suspect]
     Indication: PORTAL VEIN THROMBOSIS
     Route: 065
  4. HEPARIN [Suspect]
     Indication: VENOOCCLUSIVE LIVER DISEASE

REACTIONS (1)
  - Drug ineffective [Fatal]
